FAERS Safety Report 9143115 (Version 2)
Quarter: 2013Q2

REPORT INFORMATION
  Report Type: Spontaneous
  Country: US (occurrence: US)
  Receive Date: 20130306
  Receipt Date: 20130402
  Transmission Date: 20140414
  Serious: Yes (Hospitalization, Other)
  Sender: FDA-Public Use
  Company Number: US-PFIZER INC-2013077475

PATIENT
  Sex: Female
  Weight: 82.99 kg

DRUGS (4)
  1. PRISTIQ [Suspect]
     Indication: DEPRESSION
     Dosage: UNK
  2. PRISTIQ [Suspect]
     Indication: PAIN
  3. EXALGO [Suspect]
     Indication: PAIN
     Dosage: 60 MG DAILY
  4. AMITRIPTYLINE [Concomitant]
     Indication: SLEEP DISORDER
     Dosage: 25 MG DAILY

REACTIONS (4)
  - Suicide attempt [Unknown]
  - Withdrawal syndrome [Unknown]
  - Pruritus [Unknown]
  - Off label use [Unknown]
